FAERS Safety Report 22641448 (Version 1)
Quarter: 2023Q2

REPORT INFORMATION
  Report Type: Report from Study
  Country: DE (occurrence: DE)
  Receive Date: 20230626
  Receipt Date: 20230626
  Transmission Date: 20230721
  Serious: Yes (Hospitalization, Other)
  Sender: FDA-Public Use
  Company Number: DE-002147023-NVSC2020DE327307

PATIENT
  Sex: Female
  Weight: 52 kg

DRUGS (6)
  1. LETROZOLE [Suspect]
     Active Substance: LETROZOLE
     Indication: Breast cancer metastatic
     Dosage: 2.5 MILLIGRAM, QD
     Route: 048
     Dates: start: 20201031
  2. KISQALI [Suspect]
     Active Substance: RIBOCICLIB
     Indication: Breast cancer metastatic
     Dosage: 600MG,QD(ADM. SCHEME 21 DAYS INTAKE, 7 DAYS PAUSE)
     Route: 048
     Dates: start: 20201031, end: 20201104
  3. KISQALI [Suspect]
     Active Substance: RIBOCICLIB
     Dosage: 600MG,QD(ADM. SCHEME 21 DAYS INTAKE, 7 DAYS PAUSE)
     Route: 048
     Dates: start: 20201107, end: 20201211
  4. KISQALI [Suspect]
     Active Substance: RIBOCICLIB
     Dosage: 400MG,QD(ADM. SCHEME 21 DAYS INTAKE, 7 DAYS PAUSE)
     Route: 048
     Dates: start: 20201226, end: 20210203
  5. KISQALI [Suspect]
     Active Substance: RIBOCICLIB
     Dosage: 400MG,QD(ADM. SCHEME 21 DAYS INTAKE, 7 DAYS PAUSE)
     Route: 048
     Dates: start: 20210206, end: 20210225
  6. KISQALI [Suspect]
     Active Substance: RIBOCICLIB
     Dosage: 400MG,QD(ADM. SCHEME 21 DAYS INTAKE, 7 DAYS PAUSE)
     Route: 048
     Dates: start: 20210227

REACTIONS (4)
  - Urinary retention [Recovered/Resolved]
  - Urinary tract infection [Not Recovered/Not Resolved]
  - Nausea [Not Recovered/Not Resolved]
  - Fatigue [Not Recovered/Not Resolved]

NARRATIVE: CASE EVENT DATE: 20201101
